FAERS Safety Report 17320572 (Version 1)
Quarter: 2020Q1

REPORT INFORMATION
  Report Type: Other
  Country: US (occurrence: US)
  Receive Date: 20200126
  Receipt Date: 20200126
  Transmission Date: 20200409
  Serious: Yes (Hospitalization)
  Sender: FDA-Public Use
  Company Number: US-ACORDA-ACO_156783_2019

PATIENT
  Age: 76 Year
  Sex: Male

DRUGS (3)
  1. AMPYRA [Suspect]
     Active Substance: DALFAMPRIDINE
     Indication: GAIT DISTURBANCE
     Dosage: 10 MILLIGRAM, Q 12 HRS
     Route: 048
  2. AMPYRA [Suspect]
     Active Substance: DALFAMPRIDINE
     Indication: MULTIPLE SCLEROSIS
     Dosage: 10 MILLIGRAM, Q 12 HRS
     Route: 048
     Dates: start: 201806, end: 20190117
  3. AMPYRA [Suspect]
     Active Substance: DALFAMPRIDINE
     Dosage: 10 MILLIGRAM, Q 12 HRS
     Route: 048

REACTIONS (7)
  - Sciatica [Recovering/Resolving]
  - Therapy cessation [Unknown]
  - Product dose omission [Unknown]
  - Hypoaesthesia [Recovered/Resolved]
  - Condition aggravated [Recovered/Resolved]
  - Condition aggravated [Unknown]
  - Gait disturbance [Unknown]

NARRATIVE: CASE EVENT DATE: 201704
